FAERS Safety Report 5695761-8 (Version None)
Quarter: 2008Q2

REPORT INFORMATION
  Report Type: 
  Country: None (occurrence: None)
  Receive Date: 20080407
  Receipt Date: 20080331
  Transmission Date: 20081010
  Serious: Yes (Hospitalization)
  Sender: FDA-Public Use
  Company Number: CN-BAYER-200815835GPV

PATIENT
  Age: 38 Year
  Sex: Male

DRUGS (1)
  1. NEXAVAR [Suspect]
     Indication: METASTATIC RENAL CELL CARCINOMA
     Dosage: UNIT DOSE: 400 MG
     Route: 048
     Dates: start: 20070919

REACTIONS (2)
  - POST PROCEDURAL SEPSIS [None]
  - SKIN ULCER [None]
